FAERS Safety Report 9603256 (Version 1)
Quarter: 2013Q4

REPORT INFORMATION
  Report Type: Spontaneous
  Country: ES (occurrence: ES)
  Receive Date: 20131007
  Receipt Date: 20131007
  Transmission Date: 20140711
  Serious: Yes (Other)
  Sender: FDA-Public Use
  Company Number: ES-PFIZER INC-2013284122

PATIENT
  Age: 54 Year
  Sex: Female

DRUGS (2)
  1. LYRICA [Suspect]
     Indication: PAIN
     Dosage: 75 MG, UNK
     Dates: start: 20131001
  2. LYRICA [Suspect]
     Indication: INSOMNIA

REACTIONS (3)
  - Abasia [Unknown]
  - Dizziness [Unknown]
  - Asthenia [Unknown]
